FAERS Safety Report 15589461 (Version 1)
Quarter: 2018Q4

REPORT INFORMATION
  Report Type: Spontaneous
  Country: US (occurrence: US)
  Receive Date: 20181106
  Receipt Date: 20181106
  Transmission Date: 20190205
  Serious: Yes (Life-Threatening, Hospitalization, Other)
  Sender: FDA-Public Use
  Company Number: US-TORRENT-00007161

PATIENT
  Age: 28 Year
  Sex: Female

DRUGS (4)
  1. HYDROCORTISONE. [Suspect]
     Active Substance: HYDROCORTISONE
     Indication: THYROTOXIC CRISIS
     Dosage: UNKNOWN
  2. PROPRANOLOL [Suspect]
     Active Substance: PROPRANOLOL HYDROCHLORIDE
     Indication: THYROTOXIC CRISIS
     Dosage: UNKNOWN
  3. THIAMAZOLE [Suspect]
     Active Substance: METHIMAZOLE
     Indication: THYROTOXIC CRISIS
     Dosage: UNKNOWN
  4. POTASSIUM IODIDE. [Suspect]
     Active Substance: POTASSIUM IODIDE
     Indication: THYROTOXIC CRISIS
     Dosage: SATURATED SOLUTION; GIVEN AN HOUR AFTER FIRST DOSE OF METHIMAZOLE

REACTIONS (1)
  - Drug ineffective [Unknown]
